FAERS Safety Report 8176395-2 (Version None)
Quarter: 2012Q1

REPORT INFORMATION
  Report Type: 
  Country: None (occurrence: None)
  Receive Date: 20120228
  Receipt Date: 20120215
  Transmission Date: 20120608
  Serious: Yes (Hospitalization, Disabling)
  Sender: FDA-Public Use
  Company Number: 2010SP028345

PATIENT
  Age: 33 Year
  Sex: Female
  Weight: 82.5547 kg

DRUGS (2)
  1. CODEINE SUL TAB [Concomitant]
  2. NUVARING [Suspect]
     Indication: MENSTRUAL CYCLE MANAGEMENT
     Dates: start: 20080423, end: 20080515

REACTIONS (15)
  - BACK PAIN [None]
  - LOSS OF EMPLOYMENT [None]
  - PNEUMOTHORAX [None]
  - MUSCLE SPASMS [None]
  - LUNG CONSOLIDATION [None]
  - PULMONARY EMBOLISM [None]
  - RHABDOMYOLYSIS [None]
  - ATELECTASIS [None]
  - PNEUMONIA [None]
  - HYPERCOAGULATION [None]
  - DEHYDRATION [None]
  - ANGINA PECTORIS [None]
  - PLEURAL EFFUSION [None]
  - HEPATIC CYST [None]
  - ANAEMIA [None]
